FAERS Safety Report 25044790 (Version 5)
Quarter: 2025Q2

REPORT INFORMATION
  Report Type: Spontaneous
  Country: JP (occurrence: JP)
  Receive Date: 20250306
  Receipt Date: 20250618
  Transmission Date: 20250717
  Serious: Yes (Death, Life-Threatening, Hospitalization, Other)
  Sender: MERCK SHARP & DOHME LLC
  Company Number: JP-MSD-M2024-54809

PATIENT
  Age: 69 Year
  Sex: Female

DRUGS (3)
  1. KEYTRUDA [Suspect]
     Active Substance: PEMBROLIZUMAB
     Dosage: DOSE DESCRIPTION : 200 MILLIGRAM, Q3W?DAILY DOSE : 9.4 MILLIGRAM?REGIMEN DOSE : 600  MILLIGRAM
     Route: 041
     Dates: start: 20241107, end: 20241223
  2. CARBOPLATIN [Concomitant]
     Active Substance: CARBOPLATIN
     Indication: Triple negative breast cancer
     Route: 065
     Dates: start: 20241107
  3. PACLITAXEL [Concomitant]
     Active Substance: PACLITAXEL
     Indication: Triple negative breast cancer
     Route: 065
     Dates: start: 20241107

REACTIONS (33)
  - Immune-mediated adverse reaction [Fatal]
  - Altered state of consciousness [Unknown]
  - Ulcer [Unknown]
  - Depressed level of consciousness [Recovered/Resolved]
  - Septic shock [Unknown]
  - Pulmonary artery thrombosis [Recovered/Resolved]
  - Feeding disorder [Unknown]
  - Delirium [Recovered/Resolved]
  - Haematochezia [Unknown]
  - Base excess decreased [Recovered/Resolved]
  - Meningitis [Unknown]
  - Thrombotic thrombocytopenic purpura [Recovered/Resolved]
  - Haemophagocytic lymphohistiocytosis [Unknown]
  - Haemophagocytic lymphohistiocytosis [Unknown]
  - Cytokine release syndrome [Recovered/Resolved]
  - Cardiac arrest [Unknown]
  - Subdural haematoma [Recovered/Resolved]
  - Pyrexia [Recovered/Resolved]
  - Renal impairment [Recovered/Resolved]
  - Hepatic function abnormal [Recovered/Resolved]
  - Autoimmune hepatitis [Recovered/Resolved]
  - Hyperthyroidism [Recovered/Resolved]
  - Acute kidney injury [Recovered/Resolved]
  - Pulmonary embolism [Recovered/Resolved]
  - Immune-mediated hypothyroidism [Recovered/Resolved]
  - Blood corticotrophin decreased [Recovered/Resolved]
  - Hepatic steatosis [Recovered/Resolved]
  - Inflammation [Recovered/Resolved]
  - Hypopituitarism [Recovered/Resolved]
  - Blood lactate dehydrogenase increased [Recovered/Resolved]
  - Thyroiditis [Recovered/Resolved]
  - Haemophagocytic lymphohistiocytosis [Unknown]
  - Haemophagocytic lymphohistiocytosis [Unknown]

NARRATIVE: CASE EVENT DATE: 20240101
